FAERS Safety Report 4814307-7 (Version None)
Quarter: 2005Q4

REPORT INFORMATION
  Report Type: 
  Country: None (occurrence: None)
  Receive Date: 20051028
  Receipt Date: 20050802
  Transmission Date: 20060501
  Serious: No
  Sender: FDA-Public Use
  Company Number: US-GLAXOSMITHKLINE-A0568631A

PATIENT
  Age: 73 Year
  Sex: Female
  Weight: 79.1 kg

DRUGS (10)
  1. ADVAIR DISKUS 100/50 [Suspect]
     Indication: ASTHMA
     Dosage: 1PUFF TWICE PER DAY
     Route: 055
     Dates: start: 20010101, end: 20050802
  2. MOBIC [Concomitant]
  3. ALLOPURINOL [Concomitant]
  4. VOLTAREN [Concomitant]
  5. ZANTAC [Concomitant]
  6. XANAX [Concomitant]
  7. LIBRAX [Concomitant]
  8. DIOVAN [Concomitant]
  9. TENORMIN [Concomitant]
  10. ANTI-HISTAMINE TAB [Concomitant]

REACTIONS (3)
  - NAUSEA [None]
  - PAINFUL RESPIRATION [None]
  - PHARYNGOLARYNGEAL PAIN [None]
